FAERS Safety Report 11535018 (Version 1)
Quarter: 2015Q3

REPORT INFORMATION
  Report Type: Spontaneous
  Country: US (occurrence: None)
  Receive Date: 20150921
  Receipt Date: 20150921
  Transmission Date: 20151125
  Serious: No
  Sender: FDA-Public Use
  Company Number: None

PATIENT
  Age: 45 Year
  Sex: Female

DRUGS (7)
  1. CETROTIDE [Concomitant]
     Active Substance: CETRORELIX ACETATE
  2. GONAL-F RFF [Concomitant]
     Active Substance: FOLLITROPIN
  3. DUEPROLIDE [Concomitant]
  4. MEDROL [Concomitant]
     Active Substance: METHYLPREDNISOLONE
  5. MAKENA [Suspect]
     Active Substance: HYDROXYPROGESTERONE CAPROATE
     Indication: PREMATURE LABOUR
     Dosage: 250MG/1ML
     Route: 030
     Dates: start: 20150729, end: 20150817
  6. MENOPUR [Concomitant]
     Active Substance: FOLLICLE STIMULATING HORMONE BETA POLYPEPTIDE\LUTROPIN ALFA
  7. PROGESTERONE POW [Concomitant]

REACTIONS (3)
  - Peripheral swelling [None]
  - Erythema [None]
  - Lip swelling [None]

NARRATIVE: CASE EVENT DATE: 20150810
